APPROVED DRUG PRODUCT: NADOLOL
Active Ingredient: NADOLOL
Strength: 20MG
Dosage Form/Route: TABLET;ORAL
Application: A201893 | Product #003 | TE Code: AB
Applicant: AUROBINDO PHARMA LTD
Approved: Jun 7, 2022 | RLD: No | RS: No | Type: RX